FAERS Safety Report 9925949 (Version 1)
Quarter: 2014Q1

REPORT INFORMATION
  Report Type: Spontaneous
  Country: US (occurrence: US)
  Receive Date: 20140226
  Receipt Date: 20140226
  Transmission Date: 20141002
  Serious: No
  Sender: FDA-Public Use
  Company Number: US-BRACCO-009235

PATIENT
  Sex: Male

DRUGS (3)
  1. ISOVUE-M [Suspect]
     Indication: ARTHROGRAM
     Route: 014
     Dates: start: 20130225, end: 20130225
  2. OMNISCAN [Concomitant]
     Indication: ARTHROGRAM
     Route: 014
     Dates: start: 20130225, end: 20130225
  3. NORMAL SALINE [Concomitant]
     Route: 014
     Dates: start: 20130225, end: 20130225

REACTIONS (1)
  - Drug ineffective [Unknown]
